FAERS Safety Report 5559847-0 (Version None)
Quarter: 2007Q4

REPORT INFORMATION
  Report Type: 
  Country: None (occurrence: None)
  Receive Date: 20071214
  Receipt Date: 20071017
  Transmission Date: 20080405
  Serious: No
  Sender: FDA-Public Use
  Company Number: US-ABBOTT-07P-163-0421262-00

PATIENT
  Sex: Female
  Weight: 59.474 kg

DRUGS (18)
  1. HUMIRA [Suspect]
     Indication: CROHN'S DISEASE
     Route: 058
     Dates: start: 20071017
  2. HUMIRA [Suspect]
     Route: 058
     Dates: start: 20070919, end: 20071003
  3. HUMIRA [Suspect]
     Route: 058
     Dates: start: 20071003, end: 20071017
  4. POTASSIUM CHLORIDE [Concomitant]
     Indication: SUPPLEMENTATION THERAPY
     Route: 048
  5. MESALAMINE [Concomitant]
     Indication: CROHN'S DISEASE
     Route: 048
  6. BUDESONIDE [Concomitant]
     Indication: CROHN'S DISEASE
     Route: 048
  7. PANTOPRAZOLE SODIUM [Concomitant]
     Indication: CROHN'S DISEASE
     Route: 048
  8. DICYCLOVERINE [Concomitant]
     Indication: CROHN'S DISEASE
     Route: 048
  9. VENLAFAXIINE HCL [Concomitant]
     Indication: DEPRESSION
     Route: 048
  10. SERTRALINE [Concomitant]
     Indication: DEPRESSION
     Route: 048
  11. CLONAZEPAM [Concomitant]
     Indication: SLEEP DISORDER THERAPY
     Route: 048
  12. CLONAZEPAM [Concomitant]
     Indication: DEPRESSION
  13. LORAZEPAM [Concomitant]
     Indication: DEPRESSION
     Route: 048
  14. QUETIAPINE [Concomitant]
     Indication: DEPRESSION
     Route: 048
  15. NORETHISTERONE [Concomitant]
     Indication: MENSTRUAL DISORDER
     Route: 048
  16. FIORCET [Concomitant]
     Indication: MIGRAINE
     Route: 048
  17. SERETIDE [Concomitant]
     Indication: ASTHMA
     Route: 055
  18. SALBUTAMOL SULFATE [Concomitant]
     Indication: ASTHMA
     Route: 055

REACTIONS (1)
  - ACCIDENTAL EXPOSURE [None]
